FAERS Safety Report 7884827-X (Version None)
Quarter: 2011Q4

REPORT INFORMATION
  Report Type: 
  Country: None (occurrence: None)
  Receive Date: 20111102
  Receipt Date: 20111026
  Transmission Date: 20120403
  Serious: Yes (Hospitalization)
  Sender: FDA-Public Use
  Company Number: PHHO2011DE03843

PATIENT
  Sex: Male
  Weight: 113 kg

DRUGS (7)
  1. BISOPROLOL [Concomitant]
     Indication: HYPERTENSION
     Dosage: 0.5 MG, QD
     Dates: start: 20111023
  2. PANTOPRAZOLE SODIUM [Concomitant]
     Indication: PROPHYLAXIS AGAINST GASTROINTESTINAL ULCER
     Dates: start: 20110224
  3. TASIGNA [Suspect]
     Dosage: 400 MG, BID
     Route: 048
     Dates: start: 20110411
  4. VERGENTAN [Concomitant]
     Indication: NAUSEA
     Dosage: UNK
     Dates: start: 20100901
  5. TASIGNA [Suspect]
     Indication: CHRONIC MYELOID LEUKAEMIA
     Dosage: 800 MG, BID
     Route: 048
     Dates: start: 20080806, end: 20110410
  6. ALLOPURINOL [Concomitant]
     Indication: HYPERURICAEMIA
     Dosage: 300 MG, QD
     Route: 048
     Dates: start: 20000101
  7. RAMIPRIL [Concomitant]

REACTIONS (4)
  - CORONARY ARTERY STENOSIS [None]
  - ACUTE MYOCARDIAL INFARCTION [None]
  - ANGINA PECTORIS [None]
  - CORONARY ARTERY DISEASE [None]
